FAERS Safety Report 16524579 (Version 1)
Quarter: 2019Q3

REPORT INFORMATION
  Report Type: Spontaneous
  Country: US (occurrence: US)
  Receive Date: 20190703
  Receipt Date: 20190703
  Transmission Date: 20191004
  Serious: Yes (Hospitalization)
  Sender: FDA-Public Use
  Company Number: US-VERTEX PHARMACEUTICALS-2019-006078

PATIENT
  Sex: Female

DRUGS (1)
  1. SYMDEKO [Suspect]
     Active Substance: IVACAFTOR\TEZACAFTOR
     Indication: CYSTIC FIBROSIS
     Dosage: 100/150 TEZ/IVA AM, 150 IVA PM
     Route: 048
     Dates: start: 20180523

REACTIONS (3)
  - Dyspnoea [Unknown]
  - Pulmonary function test decreased [Recovering/Resolving]
  - Viral infection [Unknown]

NARRATIVE: CASE EVENT DATE: 2019
